FAERS Safety Report 23047721 (Version 2)
Quarter: 2023Q4

REPORT INFORMATION
  Report Type: Report from Study
  Country: US (occurrence: US)
  Receive Date: 20231010
  Receipt Date: 20231228
  Transmission Date: 20240109
  Serious: Yes (Hospitalization, Other)
  Sender: FDA-Public Use
  Company Number: US-ABBVIE-5439750

PATIENT
  Sex: Female

DRUGS (1)
  1. SKYRIZI [Suspect]
     Active Substance: RISANKIZUMAB-RZAA
     Indication: Crohn^s disease
     Route: 042
     Dates: start: 20230919

REACTIONS (3)
  - Gastrointestinal obstruction [Unknown]
  - Abdominal adhesions [Unknown]
  - Procedural complication [Unknown]

NARRATIVE: CASE EVENT DATE: 20230101
